FAERS Safety Report 4317111-1 (Version None)
Quarter: 2004Q1

REPORT INFORMATION
  Report Type: 
  Country: None (occurrence: None)
  Receive Date: 20040312
  Receipt Date: 20040225
  Transmission Date: 20041129
  Serious: Yes (Hospitalization)
  Sender: FDA-Public Use
  Company Number: 2004IM000339

PATIENT
  Age: 52 Year
  Sex: Male

DRUGS (6)
  1. ADVAFERON (A643_INTERFERON ALFACON-1) [Suspect]
     Indication: HEPATITIS C
     Dosage: 12 MU;QD;SUBCUTANEOUS
     Route: 058
     Dates: start: 20040121
  2. RIBAVIRIN [Suspect]
     Indication: HEPATITIS C
     Dosage: 400 MG; BID; SUBCUTANEOUS
     Route: 058
     Dates: start: 20040121
  3. FAMOTIDINE [Concomitant]
  4. S.M. POWDER [Concomitant]
  5. ZOPICLONE [Concomitant]
  6. DICLOFENAC SODIUM [Concomitant]

REACTIONS (4)
  - BACTERIAL INFECTION [None]
  - NEUTROPHIL COUNT DECREASED [None]
  - PERITONSILLITIS [None]
  - WHITE BLOOD CELL COUNT DECREASED [None]
